FAERS Safety Report 15096562 (Version 5)
Quarter: 2018Q3

REPORT INFORMATION
  Report Type: Report from Study
  Country: CO (occurrence: CO)
  Receive Date: 20180702
  Receipt Date: 20180904
  Transmission Date: 20181010
  Serious: Yes (Hospitalization, Other)
  Sender: FDA-Public Use
  Company Number: PHHY2018CO033525

PATIENT
  Sex: Male
  Weight: 71 kg

DRUGS (1)
  1. SIGNIFOR LAR [Suspect]
     Active Substance: PASIREOTIDE
     Indication: ACROMEGALY
     Dosage: 40 MG, QMO
     Route: 030
     Dates: start: 20160405

REACTIONS (15)
  - Diarrhoea [Unknown]
  - Inflammation [Unknown]
  - Constipation [Unknown]
  - Haemorrhage [Unknown]
  - Prostatomegaly [Recovered/Resolved]
  - Diverticulitis [Recovered/Resolved]
  - Infection [Recovering/Resolving]
  - Renal failure [Recovering/Resolving]
  - Dyschezia [Unknown]
  - Anaemia [Recovered/Resolved]
  - Abdominal pain lower [Recovered/Resolved]
  - Weight decreased [Recovered/Resolved]
  - Depressed mood [Recovering/Resolving]
  - Rectal haemorrhage [Recovered/Resolved]
  - Dysuria [Recovered/Resolved]
